FAERS Safety Report 17203457 (Version 7)
Quarter: 2020Q1

REPORT INFORMATION
  Report Type: Report from Study
  Country: GB (occurrence: GB)
  Receive Date: 20191226
  Receipt Date: 20200224
  Transmission Date: 20200409
  Serious: Yes (Other)
  Sender: FDA-Public Use
  Company Number: GB-EISAI MEDICAL RESEARCH-EC-2019-067634

PATIENT
  Age: 54 Year
  Sex: Female

DRUGS (19)
  1. LENVATINIB [Suspect]
     Active Substance: LENVATINIB
     Route: 048
     Dates: start: 20191204, end: 20191217
  2. RAMIPRIL. [Concomitant]
     Active Substance: RAMIPRIL
     Dates: start: 20190917
  3. AMLODIPINE [Concomitant]
     Active Substance: AMLODIPINE BESYLATE
     Dates: start: 20190814
  4. LENVATINIB [Suspect]
     Active Substance: LENVATINIB
     Indication: HEPATOBILIARY CANCER
     Dosage: STARTING DOSE AT 20 MG (FLUCTUATED DOSE FROM 20 MG TO 14 MG)
     Route: 048
     Dates: start: 20190724, end: 20191126
  5. METOCLOPRAMIDE. [Concomitant]
     Active Substance: METOCLOPRAMIDE
     Dates: start: 20191012
  6. ASCORBIC ACID. [Concomitant]
     Active Substance: ASCORBIC ACID
     Dates: start: 201804
  7. EMLA [Concomitant]
     Active Substance: LIDOCAINE\PRILOCAINE
     Dates: start: 20190923
  8. MICONAZOLE. [Concomitant]
     Active Substance: MICONAZOLE
     Dates: start: 20191009
  9. PEMBROLIZUMAB. [Suspect]
     Active Substance: PEMBROLIZUMAB
     Indication: HEPATOBILIARY CANCER
     Route: 041
     Dates: start: 20190724, end: 20191106
  10. PEMBROLIZUMAB. [Suspect]
     Active Substance: PEMBROLIZUMAB
     Route: 041
     Dates: start: 20191127, end: 20191127
  11. ACETAMINOPHEN. [Concomitant]
     Active Substance: ACETAMINOPHEN
     Dates: start: 201804
  12. VITAMIN D [Concomitant]
     Active Substance: VITAMIN D NOS
     Dates: start: 201804
  13. MAGNESIUM [Concomitant]
     Active Substance: MAGNESIUM
     Dates: start: 201804
  14. DILTIAZEM HYDROCHLORIDE. [Concomitant]
     Active Substance: DILTIAZEM HYDROCHLORIDE
     Dates: start: 20190911
  15. MICROLAX [Concomitant]
     Dates: start: 20190917
  16. UNIROID-HC [Concomitant]
     Dates: start: 20190918
  17. RAMIPRIL. [Concomitant]
     Active Substance: RAMIPRIL
     Dates: start: 20190904
  18. PEMBROLIZUMAB. [Suspect]
     Active Substance: PEMBROLIZUMAB
     Route: 041
     Dates: start: 20200205
  19. LENVATINIB [Suspect]
     Active Substance: LENVATINIB
     Route: 048
     Dates: start: 20200205

REACTIONS (1)
  - Left ventricular dysfunction [Recovered/Resolved]

NARRATIVE: CASE EVENT DATE: 20191218
